FAERS Safety Report 20770124 (Version 1)
Quarter: 2022Q2

REPORT INFORMATION
  Report Type: Spontaneous
  Country: US (occurrence: US)
  Receive Date: 20220429
  Receipt Date: 20220429
  Transmission Date: 20220721
  Serious: No
  Sender: FDA-Public Use
  Company Number: US-ABBVIE-21K-163-4004970-00

PATIENT
  Sex: Male

DRUGS (2)
  1. ANDROGEL [Suspect]
     Active Substance: TESTOSTERONE
     Indication: Androgen deficiency
     Dosage: TWO PUMPS A DAY
     Route: 061
  2. ANDROGEL [Suspect]
     Active Substance: TESTOSTERONE
     Dosage: THREE PUMPS A DAY
     Route: 061

REACTIONS (3)
  - Osteoporosis [Unknown]
  - Osteopenia [Unknown]
  - Blood testosterone increased [Unknown]
